FAERS Safety Report 4509923-6 (Version None)
Quarter: 2004Q4

REPORT INFORMATION
  Report Type: 
  Country: None (occurrence: None)
  Receive Date: 20041119
  Receipt Date: 20041102
  Transmission Date: 20050328
  Serious: Yes (Other)
  Sender: FDA-Public Use
  Company Number: DE_040914222

PATIENT
  Age: 72 Year
  Sex: Male

DRUGS (1)
  1. CIALIS [Suspect]
     Indication: ERECTILE DYSFUNCTION
     Dosage: 20 MG AS NEEDED
     Dates: start: 20030414, end: 20040808

REACTIONS (4)
  - MICROANGIOPATHY [None]
  - NERVOUS SYSTEM DISORDER [None]
  - SPINAL DISORDER [None]
  - VASCULAR OCCLUSION [None]
